FAERS Safety Report 24912751 (Version 2)
Quarter: 2025Q1

REPORT INFORMATION
  Report Type: Spontaneous
  Country: US (occurrence: US)
  Receive Date: 20250131
  Receipt Date: 20250304
  Transmission Date: 20250408
  Serious: No
  Sender: IOVANCE BIOTHERAPEUTICS
  Company Number: US-IOVANCE BIOTHERAPEUTICS, INC-2024IOV000105

PATIENT

DRUGS (4)
  1. AMTAGVI [Suspect]
     Active Substance: LIFILEUCEL
     Route: 042
     Dates: start: 20241008, end: 20241008
  2. CYCLOPHOSPHAMIDE [Suspect]
     Active Substance: CYCLOPHOSPHAMIDE
     Indication: Lymphodepletion
     Route: 042
  3. FLUDARABINE [Suspect]
     Active Substance: FLUDARABINE PHOSPHATE
     Indication: Lymphodepletion
     Route: 042
  4. ALDESLEUKIN [Suspect]
     Active Substance: ALDESLEUKIN
     Route: 042

REACTIONS (6)
  - Kidney infection [Recovered/Resolved]
  - Urinary tract infection [Recovered/Resolved]
  - Anxiety [Recovering/Resolving]
  - Ageusia [Recovered/Resolved]
  - Malaise [Recovered/Resolved]
  - Decreased appetite [Recovered/Resolved]

NARRATIVE: CASE EVENT DATE: 20240101
